FAERS Safety Report 8251438-6 (Version None)
Quarter: 2012Q1

REPORT INFORMATION
  Report Type: 
  Country: None (occurrence: None)
  Receive Date: 20120321
  Receipt Date: 20110906
  Transmission Date: 20120608
  Serious: Yes (Other)
  Sender: FDA-Public Use
  Company Number: 200814117

PATIENT
  Sex: Female
  Weight: 79.8331 kg

DRUGS (2)
  1. RHOPHYLAC [Suspect]
     Indication: PROPHYLAXIS AGAINST RH ISOIMMUNISATION
     Dosage: DAILY DOSE QUANTITY: 300, DAILY DOSE UNIT: UG INTRAMUSCULAR
     Route: 030
     Dates: start: 20080630, end: 20080630
  2. RHOPHYLAC [Suspect]
     Indication: PROPHYLAXIS AGAINST RH ISOIMMUNISATION
     Dosage: 300 UG, DAILY DOSE QUANTITY: 300, DAILY DOSE UNIT: UG INTRAMUSCULAR
     Route: 030
     Dates: start: 20080922, end: 20080922

REACTIONS (2)
  - COOMBS DIRECT TEST POSITIVE [None]
  - DRUG INEFFECTIVE [None]
